FAERS Safety Report 7039068-5 (Version None)
Quarter: 2010Q4

REPORT INFORMATION
  Report Type: 
  Country: None (occurrence: None)
  Receive Date: 20101012
  Receipt Date: 20101005
  Transmission Date: 20110411
  Serious: Yes (Other)
  Sender: FDA-Public Use
  Company Number: US-BAYER-201035729NA

PATIENT
  Age: 72 Year
  Sex: Female

DRUGS (6)
  1. CIPROFLOXACIN HYDROCHLORIDE [Suspect]
     Indication: PRODUCT USED FOR UNKNOWN INDICATION
     Route: 048
  2. GLIPIZIDE [Concomitant]
  3. MACRODANTIN [Concomitant]
     Route: 048
  4. HUMALOG [Concomitant]
     Indication: TYPE 2 DIABETES MELLITUS
     Dosage: INSULIN LISPRO
     Dates: start: 20090201
  5. HUMALOG MIX [Concomitant]
     Indication: TYPE 2 DIABETES MELLITUS
     Dosage: INSULIN PROTAMINE 75% AND INSULIN LISPRO 25%
     Dates: start: 20000101
  6. ANTIBIOTICS [Concomitant]
     Indication: KIDNEY INFECTION
     Route: 042

REACTIONS (1)
  - MENISCUS LESION [None]
